FAERS Safety Report 21904122 (Version 1)
Quarter: 2023Q1

REPORT INFORMATION
  Report Type: Spontaneous
  Country: US (occurrence: None)
  Receive Date: 20230123
  Receipt Date: 20230123
  Transmission Date: 20230417
  Serious: No
  Sender: FDA-Public Use
  Company Number: None

PATIENT
  Age: 87 Year
  Sex: Female
  Weight: 67.49 kg

DRUGS (10)
  1. KISQALI [Suspect]
     Active Substance: RIBOCICLIB
     Indication: Breast cancer stage IV
     Dosage: OTHER FREQUENCY : 3W,1 W OFF;?
     Route: 048
     Dates: start: 20220301
  2. CANDESARTAN [Concomitant]
     Active Substance: CANDESARTAN
  3. FEMARA [Concomitant]
     Active Substance: LETROZOLE
  4. HYDROCHLOROTHIAZIDE [Concomitant]
     Active Substance: HYDROCHLOROTHIAZIDE
  5. VITAMIN D3 [Concomitant]
  6. LETROZOLE [Concomitant]
     Active Substance: LETROZOLE
  7. METOPROLOL SUCCINATE [Concomitant]
     Active Substance: METOPROLOL SUCCINATE
  8. POLY-VITAMIN/IRON [Concomitant]
  9. PRESERVISION AREDS [Concomitant]
  10. ROSUVASTATIN [Concomitant]
     Active Substance: ROSUVASTATIN

REACTIONS (1)
  - COVID-19 [None]
